FAERS Safety Report 8455184-5 (Version None)
Quarter: 2012Q2

REPORT INFORMATION
  Report Type: 
  Country: None (occurrence: None)
  Receive Date: 20120621
  Receipt Date: 20120521
  Transmission Date: 20120825
  Serious: Yes (Hospitalization)
  Sender: FDA-Public Use
  Company Number: GB-BAXTER-2012BH005573

PATIENT
  Age: 75 Year
  Sex: Female
  Weight: 78 kg

DRUGS (6)
  1. VINCRISTINE [Suspect]
     Indication: DIFFUSE LARGE B-CELL LYMPHOMA
     Route: 042
     Dates: start: 20110524, end: 20110609
  2. RITUXIMAB [Suspect]
     Indication: DIFFUSE LARGE B-CELL LYMPHOMA
     Route: 042
     Dates: start: 20110524, end: 20110609
  3. CYCLOPHOSPHAMIDE [Suspect]
     Indication: DIFFUSE LARGE B-CELL LYMPHOMA
     Route: 042
     Dates: start: 20110524, end: 20110609
  4. DOXORUBICIN HCL [Suspect]
     Indication: DIFFUSE LARGE B-CELL LYMPHOMA
     Route: 042
     Dates: start: 20110524, end: 20110609
  5. NEULASTA [Suspect]
     Indication: PROPHYLAXIS
     Route: 058
     Dates: start: 20110615
  6. VINCRISTINE [Suspect]
     Indication: OFF LABEL USE

REACTIONS (2)
  - DRUG INEFFECTIVE [None]
  - NEUTROPENIC SEPSIS [None]
